FAERS Safety Report 25078128 (Version 1)
Quarter: 2025Q1

REPORT INFORMATION
  Report Type: Other
  Country: US (occurrence: US)
  Receive Date: 20250314
  Receipt Date: 20250314
  Transmission Date: 20250409
  Serious: Yes (Hospitalization, Other)
  Sender: YILING PHARMACEUTICAL LTD
  Company Number: US-YILING-2025YPSPO0009

PATIENT
  Age: 26 Year
  Sex: Female
  Weight: 170 kg

DRUGS (1)
  1. LAMOTRIGINE [Suspect]
     Active Substance: LAMOTRIGINE
     Indication: Seizure
     Route: 065

REACTIONS (6)
  - Neurotoxicity [Recovered/Resolved]
  - Loss of consciousness [Recovered/Resolved]
  - Gait disturbance [Recovered/Resolved]
  - Dizziness [Recovered/Resolved]
  - Impaired work ability [Recovered/Resolved]
  - Product substitution issue [Unknown]
